FAERS Safety Report 24051536 (Version 1)
Quarter: 2024Q3

REPORT INFORMATION
  Report Type: Spontaneous
  Country: GB (occurrence: GB)
  Receive Date: 20240704
  Receipt Date: 20240704
  Transmission Date: 20241016
  Serious: Yes (Life-Threatening, Other)
  Sender: PFIZER
  Company Number: GB-MHRA-TPP34468126C7755960YC1719918215350

PATIENT
  Age: 68 Year
  Sex: Female
  Weight: 87 kg

DRUGS (11)
  1. PIPERACILLIN SODIUM\TAZOBACTAM SODIUM [Suspect]
     Active Substance: PIPERACILLIN SODIUM\TAZOBACTAM SODIUM
     Dosage: UNK
     Dates: start: 20240619
  2. LIDOCAINE HYDROCHLORIDE [Concomitant]
     Active Substance: LIDOCAINE HYDROCHLORIDE
     Indication: Ill-defined disorder
     Dosage: APPLY FOR 12 HOURS AND REMOVE. DO NOT APPLY A F...
     Dates: start: 20240530, end: 20240629
  3. DOXYCYCLINE [Concomitant]
     Active Substance: DOXYCYCLINE\DOXYCYCLINE HYCLATE
     Indication: Ill-defined disorder
     Dosage: TAKE TWO CAPSULES STRAIGHT AWAY AND THEN ONE CA...
     Dates: start: 20240621, end: 20240626
  4. PREDNISOLONE [Concomitant]
     Active Substance: PREDNISOLONE
     Indication: Ill-defined disorder
     Dosage: 6 TABLET DAILY FOR 5 DAYS RESCUE PACK FOR LUNG ...
     Dates: start: 20240621, end: 20240626
  5. CARBOCYSTEINE [Concomitant]
     Active Substance: CARBOCYSTEINE
     Indication: Ill-defined disorder
     Dosage: TWO CAPSULES THREE TIMES DAILY
     Dates: start: 20240117
  6. FUROSEMIDE [Concomitant]
     Active Substance: FUROSEMIDE
     Indication: Ill-defined disorder
     Dosage: ONE TO BE TAKEN TWICE A DAY
     Dates: start: 20240117
  7. IPRATROPIUM BROMIDE [Concomitant]
     Active Substance: IPRATROPIUM BROMIDE\IPRATROPIUM BROMIDE ANHYDROUS
     Indication: Ill-defined disorder
     Dosage: FOUR TIMES DAILY
     Dates: start: 20240117
  8. LANSOPRAZOLE [Concomitant]
     Active Substance: LANSOPRAZOLE
     Indication: Ill-defined disorder
     Dosage: 1 D
     Dates: start: 20240117
  9. ALBUTEROL [Concomitant]
     Active Substance: ALBUTEROL
     Indication: Ill-defined disorder
     Dosage: TO BE TAKEN THREE TIMES DAILY
     Dates: start: 20240117
  10. SPIRONOLACTONE [Concomitant]
     Active Substance: SPIRONOLACTONE
     Indication: Ill-defined disorder
     Dosage: TAKE ONE TABLET EACH MORNING
     Dates: start: 20240117
  11. TRELEGY ELLIPTA [Concomitant]
     Active Substance: FLUTICASONE FUROATE\UMECLIDINIUM BROMIDE\VILANTEROL TRIFENATATE
     Indication: Ill-defined disorder
     Dosage: INHALE 1 DOSE DAILY
     Dates: start: 20240117

REACTIONS (2)
  - Cardiac arrest [Recovering/Resolving]
  - Anaphylactic reaction [Unknown]
